FAERS Safety Report 19233637 (Version 1)
Quarter: 2021Q2

REPORT INFORMATION
  Report Type: Other
  Country: DE (occurrence: DE)
  Receive Date: 20210507
  Receipt Date: 20210507
  Transmission Date: 20210717
  Serious: Yes (Other)
  Sender: FDA-Public Use
  Company Number: DE-ARBOR PHARMACEUTICALS, LLC-DE-2021ARB000533

PATIENT
  Sex: Male

DRUGS (1)
  1. CIPROFLOXACIN\FLUOCINOLONE ACETONIDE [Suspect]
     Active Substance: CIPROFLOXACIN\FLUOCINOLONE ACETONIDE
     Indication: PRODUCT USED FOR UNKNOWN INDICATION
     Dosage: UNK

REACTIONS (7)
  - Otorrhoea [Unknown]
  - Product residue present [Unknown]
  - Ear infection fungal [Unknown]
  - Tinnitus [Unknown]
  - Ear pain [Unknown]
  - Inner ear inflammation [Unknown]
  - Deafness [Unknown]
